FAERS Safety Report 24856598 (Version 1)
Quarter: 2025Q1

REPORT INFORMATION
  Report Type: Spontaneous
  Country: US (occurrence: None)
  Receive Date: 20250116
  Receipt Date: 20250116
  Transmission Date: 20250409
  Serious: No
  Sender: FDA-CTU
  Company Number: None

PATIENT
  Age: 72 Year
  Sex: Female
  Weight: 83.25 kg

DRUGS (7)
  1. RINVOQ [Suspect]
     Active Substance: UPADACITINIB
     Indication: Crohn^s disease
     Dosage: 28 TABLETS DAILY ORAL ?
     Route: 048
     Dates: start: 20250113, end: 20250115
  2. PANTOPRAZOLE [Concomitant]
     Active Substance: PANTOPRAZOLE
  3. ZETIA [Concomitant]
     Active Substance: EZETIMIBE
  4. Lifesource Multi-vitamin [Concomitant]
  5. Bowel smooth [Concomitant]
  6. Acid Sooth [Concomitant]
  7. Marshmallow root [Concomitant]

REACTIONS (9)
  - Swelling face [None]
  - Ear discomfort [None]
  - Paranasal sinus discomfort [None]
  - Ear discomfort [None]
  - Rhinorrhoea [None]
  - Nasal congestion [None]
  - Pruritus [None]
  - Rash [None]
  - Headache [None]

NARRATIVE: CASE EVENT DATE: 20250115
